FAERS Safety Report 23686453 (Version 2)
Quarter: 2024Q2

REPORT INFORMATION
  Report Type: Spontaneous
  Country: JP (occurrence: JP)
  Receive Date: 20240329
  Receipt Date: 20240401
  Transmission Date: 20240716
  Serious: Yes (Death, Life-Threatening, Hospitalization, Other)
  Sender: FDA-Public Use
  Company Number: JP-Accord-415370

PATIENT
  Age: 76 Year
  Sex: Male

DRUGS (6)
  1. OXALIPLATIN [Suspect]
     Active Substance: OXALIPLATIN
     Indication: Gastric cancer
     Dosage: FIRST TO FOURTH DOSE
     Dates: start: 202202, end: 2022
  2. NIVOLUMAB [Suspect]
     Active Substance: NIVOLUMAB
     Indication: Gastric cancer
     Dosage: FIRST TO FOURTH DOSE
     Dates: start: 202202, end: 2022
  3. TS-1 [Suspect]
     Active Substance: GIMERACIL\OTERACIL POTASSIUM\TEGAFUR
     Indication: Gastric cancer
     Dosage: FIFTH DOSE
     Dates: start: 202205
  4. NIVOLUMAB [Suspect]
     Active Substance: NIVOLUMAB
     Indication: Gastric cancer
     Dosage: FIFTH DOSE,  360 MG/BODY
     Dates: start: 202205
  5. TS-1 [Suspect]
     Active Substance: GIMERACIL\OTERACIL POTASSIUM\TEGAFUR
     Indication: Gastric cancer
     Dosage: FIRST TO FOURTH DOSE
     Dates: start: 202202, end: 2022
  6. OXALIPLATIN [Suspect]
     Active Substance: OXALIPLATIN
     Indication: Gastric cancer
     Dosage: FIFTH DOSE, 150MG/BODY
     Dates: start: 202205

REACTIONS (7)
  - Organising pneumonia [Fatal]
  - Pneumonia bacterial [Fatal]
  - Septic shock [Recovering/Resolving]
  - Pneumocystis jirovecii pneumonia [Fatal]
  - Disseminated intravascular coagulation [Fatal]
  - Pneumonia streptococcal [Fatal]
  - Diffuse alveolar damage [Fatal]
